FAERS Safety Report 10949357 (Version 6)
Quarter: 2018Q3

REPORT INFORMATION
  Report Type: Other
  Country: JP (occurrence: JP)
  Receive Date: 20150324
  Receipt Date: 20180914
  Transmission Date: 20181010
  Serious: Yes (Hospitalization, Other)
  Sender: FDA-Public Use
  Company Number: JP-ACTELION-A-CH2013-77422

PATIENT
  Age: 26 Year
  Sex: Male

DRUGS (18)
  1. BRAZAVES [Suspect]
     Active Substance: MIGLUSTAT
     Indication: NIEMANN-PICK DISEASE
     Dosage: 200 MG, TID
     Route: 048
     Dates: start: 20121210, end: 20121213
  2. AMINO ACIDS NOS W/ELECTROLYTES NOS/NICOTINAMI [Concomitant]
  3. UNASYN [Interacting]
     Active Substance: AMPICILLIN SODIUM\SULBACTAM SODIUM
     Indication: PNEUMONIA
     Dosage: 3 G, QID
     Route: 048
     Dates: start: 20150209, end: 20150216
  4. UNASYN [Interacting]
     Active Substance: AMPICILLIN SODIUM\SULBACTAM SODIUM
     Indication: PYREXIA
     Dosage: 3 G, QID
     Route: 048
     Dates: start: 20150227, end: 20150302
  5. URSO [Concomitant]
     Active Substance: URSODIOL
  6. HYDROXYZINE [Concomitant]
     Active Substance: HYDROXYZINE HYDROCHLORIDE
  7. BRAZAVES [Interacting]
     Active Substance: MIGLUSTAT
     Dosage: 166.66 MG, TID
     Route: 048
     Dates: start: 20130301, end: 20150209
  8. BRAZAVES [Interacting]
     Active Substance: MIGLUSTAT
     Dosage: 166.66 MG, TID
     Route: 048
     Dates: start: 20150213, end: 20150302
  9. BISOLVON [Concomitant]
     Active Substance: BROMHEXINE HYDROCHLORIDE
  10. RINGER ACETAT [Concomitant]
  11. BRAZAVES [Interacting]
     Active Substance: MIGLUSTAT
     Dosage: 166.66 MG, TID
     Route: 048
     Dates: start: 20150309
  12. ARTANE [Concomitant]
     Active Substance: TRIHEXYPHENIDYL HYDROCHLORIDE
  13. LORATADINE. [Concomitant]
     Active Substance: LORATADINE
  14. AMBROXOL [Concomitant]
     Active Substance: AMBROXOL
  15. BRAZAVES [Interacting]
     Active Substance: MIGLUSTAT
     Dosage: 133.33 MG, TID
     Route: 048
     Dates: start: 20130202, end: 20130228
  16. UNASYN [Interacting]
     Active Substance: AMPICILLIN SODIUM\SULBACTAM SODIUM
     Dosage: 3 G, QID
     Route: 048
     Dates: start: 20150520, end: 20150525
  17. SODIUM CHLORIDE. [Concomitant]
     Active Substance: SODIUM CHLORIDE
  18. BRAZAVES [Interacting]
     Active Substance: MIGLUSTAT
     Dosage: 100 MG, TID
     Route: 048
     Dates: start: 20121214, end: 20130201

REACTIONS (8)
  - Pneumonia aspiration [Recovered/Resolved]
  - Diarrhoea [Recovered/Resolved]
  - Drug interaction [Recovered/Resolved]
  - Nausea [Recovered/Resolved]
  - Platelet count decreased [Recovered/Resolved]
  - Cytopenia [Recovered/Resolved]
  - Red blood cell count decreased [Recovered/Resolved]
  - White blood cell count decreased [Recovered/Resolved]

NARRATIVE: CASE EVENT DATE: 20121213
